FAERS Safety Report 25469057 (Version 1)
Quarter: 2025Q2

REPORT INFORMATION
  Report Type: Spontaneous
  Country: GB (occurrence: GB)
  Receive Date: 20250623
  Receipt Date: 20250623
  Transmission Date: 20250716
  Serious: Yes (Other)
  Sender: ASCEND THERAPEUTICS US, LLC
  Company Number: GB-Ascend Therapeutics US, LLC-2179201

PATIENT
  Sex: Female

DRUGS (2)
  1. ESTROGEL [Suspect]
     Active Substance: ESTRADIOL
     Indication: Adverse drug reaction
     Dates: start: 20250507, end: 20250507
  2. ESTRADIOL [Suspect]
     Active Substance: ESTRADIOL
     Dates: start: 20250507, end: 20250507

REACTIONS (2)
  - Breast tenderness [Recovering/Resolving]
  - Medication error [Unknown]
